FAERS Safety Report 5690529-0 (Version None)
Quarter: 2008Q1

REPORT INFORMATION
  Report Type: 
  Country: None (occurrence: None)
  Receive Date: 20080331
  Receipt Date: 20080331
  Transmission Date: 20080703
  Serious: Yes (Death, Life-Threatening)
  Sender: FDA-Public Use
  Company Number: None

PATIENT
  Age: 23 Year
  Sex: Male
  Weight: 77.5651 kg

DRUGS (1)
  1. METHADONE HCL [Suspect]
     Indication: DRUG DEPENDENCE
     Dosage: INCREASED BY 5 MG DAILY PO
     Route: 048
     Dates: start: 20070404, end: 20070408

REACTIONS (3)
  - IMPAIRED DRIVING ABILITY [None]
  - IRRITABILITY [None]
  - SLEEP ATTACKS [None]
